FAERS Safety Report 7005370-6 (Version None)
Quarter: 2010Q3

REPORT INFORMATION
  Report Type: 
  Country: None (occurrence: None)
  Receive Date: 20100921
  Receipt Date: 20100909
  Transmission Date: 20110219
  Serious: Yes (Hospitalization, Disabling)
  Sender: FDA-Public Use
  Company Number: DE-SANOFI-AVENTIS-2010SA051705

PATIENT
  Age: 75 Year
  Sex: Male

DRUGS (5)
  1. QUENSYL [Suspect]
     Indication: RHEUMATOID ARTHRITIS
     Route: 048
     Dates: start: 20090701, end: 20100801
  2. PANTOPRAZOLE SODIUM [Concomitant]
     Indication: PROPHYLAXIS
     Route: 048
  3. DELIX [Concomitant]
     Indication: HYPERTENSION
     Route: 048
  4. PREDNISOLONE [Concomitant]
     Indication: RHEUMATOID ARTHRITIS
     Route: 048
  5. TRANSTEC [Concomitant]
     Indication: PAIN
     Route: 062

REACTIONS (6)
  - ASTHENIA [None]
  - DENERVATION ATROPHY [None]
  - GAIT DISTURBANCE [None]
  - MUSCULOSKELETAL DISORDER [None]
  - POLYNEUROPATHY [None]
  - SENSORY DISTURBANCE [None]
